FAERS Safety Report 7580861-8 (Version None)
Quarter: 2011Q2

REPORT INFORMATION
  Report Type: 
  Country: None (occurrence: None)
  Receive Date: 20110629
  Receipt Date: 20110620
  Transmission Date: 20111010
  Serious: Yes (Hospitalization)
  Sender: FDA-Public Use
  Company Number: MX-SANOFI-AVENTIS-2011SA039171

PATIENT
  Age: 43 Year
  Sex: Female
  Weight: 65 kg

DRUGS (2)
  1. INSULIN GLARGINE [Suspect]
     Indication: TYPE 2 DIABETES MELLITUS
     Route: 058
     Dates: start: 20100801
  2. NPH INSULIN [Concomitant]

REACTIONS (2)
  - DIABETIC NEUROPATHY [None]
  - HYPERGLYCAEMIA [None]
